FAERS Safety Report 6945069-5 (Version None)
Quarter: 2010Q3

REPORT INFORMATION
  Report Type: 
  Country: None (occurrence: None)
  Receive Date: 20100827
  Receipt Date: 20100823
  Transmission Date: 20110219
  Serious: Yes (Death)
  Sender: FDA-Public Use
  Company Number: PHHY2010MX55917

PATIENT
  Age: 73 Year
  Sex: Female

DRUGS (3)
  1. DIOVAN HCT [Suspect]
     Indication: HYPERTENSION
     Dosage: I TABLET (160/12.5) DAILY
     Route: 048
  2. BI-EUGLUCON [Concomitant]
     Indication: DIABETES MELLITUS
     Dosage: 2 TABLETS DAILY
  3. SAMYR (ADEMETIONINE TOSILATE SULFATE) [Concomitant]
     Indication: LIVER DISORDER
     Dosage: 1 TABLET DAILY

REACTIONS (3)
  - BLOOD PRESSURE INCREASED [None]
  - DIABETIC COMPLICATION [None]
  - HEPATITIS C [None]
